FAERS Safety Report 15356303 (Version 1)
Quarter: 2018Q3

REPORT INFORMATION
  Report Type: Report from Study
  Country: GB (occurrence: GB)
  Receive Date: 20180906
  Receipt Date: 20180906
  Transmission Date: 20181010
  Serious: Yes (Hospitalization)
  Sender: FDA-Public Use
  Company Number: GB-ASTRAZENECA-2017SE71514

PATIENT
  Age: 73 Year
  Sex: Male
  Weight: 77 kg

DRUGS (31)
  1. RANITIDINE. [Concomitant]
     Active Substance: RANITIDINE
     Route: 048
  2. ONDANSETRON [Concomitant]
     Active Substance: ONDANSETRON
     Indication: VOMITING
     Route: 048
     Dates: start: 20170629
  3. SALBUTAMOL [Concomitant]
     Active Substance: ALBUTEROL
     Dosage: PRN2.5MG ONCE/SINGLE ADMINISTRATION
     Route: 055
     Dates: start: 20170629
  4. CYCLOPHOSPHAMIDE. [Suspect]
     Active Substance: CYCLOPHOSPHAMIDE
     Indication: DIFFUSE LARGE B-CELL LYMPHOMA
     Dosage: 1 ,500 MG (AT 750 MG/M2) DAILY BOLUS OVER 10 MINUTES FOR 1 DAY
     Route: 042
     Dates: start: 20170629
  5. OMNISCAN [Concomitant]
     Active Substance: GADODIAMIDE
     Dosage: PRN
     Route: 048
  6. METOCLOPRAMIDE. [Concomitant]
     Active Substance: METOCLOPRAMIDE
     Indication: NAUSEA
     Route: 048
  7. DOXORUBICIN [Suspect]
     Active Substance: DOXORUBICIN
     Indication: DIFFUSE LARGE B-CELL LYMPHOMA
     Dosage: AT 50 MG/M2, DAILY BOLUS100.0MG ONCE/SINGLE ADMINISTRATION
     Route: 042
     Dates: start: 20170629
  8. PREDNISOLONE. [Suspect]
     Active Substance: PREDNISOLONE
     Indication: DIFFUSE LARGE B-CELL LYMPHOMA
     Dosage: FOR 1 DAY
     Route: 048
     Dates: start: 20170629
  9. LOPERAMIDE [Concomitant]
     Active Substance: LOPERAMIDE
     Dosage: 2.0MG UNKNOWN
     Route: 048
  10. ONDANSETRON [Concomitant]
     Active Substance: ONDANSETRON
     Indication: NAUSEA
     Route: 048
     Dates: start: 20170609
  11. ACALABRUTINIB. [Suspect]
     Active Substance: ACALABRUTINIB
     Indication: DIFFUSE LARGE B-CELL LYMPHOMA
     Dosage: FOR 21 DAYS
     Route: 048
     Dates: start: 20170629
  12. RITUXIMAB. [Suspect]
     Active Substance: RITUXIMAB
     Indication: DIFFUSE LARGE B-CELL LYMPHOMA
     Dosage: 800.0MG ONCE/SINGLE ADMINISTRATION
     Route: 042
     Dates: start: 20170609
  13. METOCLOPRAMIDE. [Concomitant]
     Active Substance: METOCLOPRAMIDE
     Indication: VOMITING
     Route: 048
  14. CHLORPHENAMINE [Concomitant]
     Active Substance: CHLORPHENIRAMINE MALEATE
     Route: 042
     Dates: start: 20170629
  15. PARACETAMOL [Concomitant]
     Active Substance: ACETAMINOPHEN
     Route: 048
     Dates: start: 20170629
  16. ONDANSETRON [Concomitant]
     Active Substance: ONDANSETRON
     Indication: VOMITING
     Route: 048
     Dates: start: 20170609
  17. DOCUSATE SODIUM. [Suspect]
     Active Substance: DOCUSATE SODIUM
     Route: 048
     Dates: end: 20170629
  18. HYOSCINE BUTYLBROMIDE [Concomitant]
     Active Substance: BUTYLSCOPOLAMINE
     Route: 048
  19. CHLORPHENAMINE [Concomitant]
     Active Substance: CHLORPHENIRAMINE MALEATE
     Route: 042
     Dates: start: 20170609
  20. ONDANSETRON [Concomitant]
     Active Substance: ONDANSETRON
     Indication: NAUSEA
     Route: 048
     Dates: start: 20170629
  21. SALBUTAMOL [Concomitant]
     Active Substance: ALBUTEROL
     Dosage: PRN2.5MG ONCE/SINGLE ADMINISTRATION
     Route: 055
     Dates: start: 20170611
  22. VINCRISTINE [Suspect]
     Active Substance: VINCRISTINE
     Indication: DIFFUSE LARGE B-CELL LYMPHOMA
     Dosage: 2 MG (AT 1.4 MG/M2) DAILY BOLUS OVER 1 O MINUTES FOR 1 DAY IN SODIUM CHLORIDE 0.9% W/V 50 ML
     Route: 042
     Dates: start: 20170611
  23. VINCRISTINE [Suspect]
     Active Substance: VINCRISTINE
     Indication: DIFFUSE LARGE B-CELL LYMPHOMA
     Dosage: 2 MG (AT 1.4 MG/M2) DAILY BOLUS OVER 1 O MINUTES FOR 1 DAY IN SODIUM CHLORIDE 0.9% W/V 50 ML
     Route: 042
     Dates: start: 20170629
  24. PREDNISOLONE. [Suspect]
     Active Substance: PREDNISOLONE
     Indication: DIFFUSE LARGE B-CELL LYMPHOMA
     Dosage: FOR 1 DAY
     Route: 048
     Dates: start: 20170609
  25. HYDROCORTISONE SODIUM SUCCINATE [Concomitant]
     Active Substance: HYDROCORTISONE SODIUM SUCCINATE
     Dosage: PRN100.0MG ONCE/SINGLE ADMINISTRATION
     Route: 042
     Dates: start: 20170611
  26. RITUXIMAB. [Suspect]
     Active Substance: RITUXIMAB
     Indication: DIFFUSE LARGE B-CELL LYMPHOMA
     Dosage: 800.0MG ONCE/SINGLE ADMINISTRATION
     Route: 042
     Dates: start: 20170629
  27. CYCLOPHOSPHAMIDE. [Suspect]
     Active Substance: CYCLOPHOSPHAMIDE
     Indication: DIFFUSE LARGE B-CELL LYMPHOMA
     Dosage: 1 ,500 MG (AT 750 MG/M2) DAILY BOLUS OVER 10 MINUTES FOR 1 DAY
     Route: 042
     Dates: start: 20170611
  28. DOXORUBICIN [Suspect]
     Active Substance: DOXORUBICIN
     Indication: DIFFUSE LARGE B-CELL LYMPHOMA
     Dosage: AT 50 MG/M2, DAILY BOLUS100.0MG ONCE/SINGLE ADMINISTRATION
     Route: 042
     Dates: start: 20170611
  29. ALLOPURINOL. [Concomitant]
     Active Substance: ALLOPURINOL
     Route: 048
  30. PARACETAMOL [Concomitant]
     Active Substance: ACETAMINOPHEN
     Route: 048
     Dates: start: 20170609
  31. HYDROCORTISONE SODIUM SUCCINATE [Concomitant]
     Active Substance: HYDROCORTISONE SODIUM SUCCINATE
     Dosage: PRN100.0MG ONCE/SINGLE ADMINISTRATION
     Route: 042
     Dates: start: 20170629

REACTIONS (2)
  - Hypokalaemia [Recovered/Resolved]
  - Diarrhoea [Not Recovered/Not Resolved]

NARRATIVE: CASE EVENT DATE: 20170706
